FAERS Safety Report 16569533 (Version 1)
Quarter: 2019Q3

REPORT INFORMATION
  Report Type: Other
  Country: US (occurrence: US)
  Receive Date: 20190715
  Receipt Date: 20190715
  Transmission Date: 20191004
  Serious: Yes (Hospitalization, Other)
  Sender: FDA-Public Use
  Company Number: US-DEXPHARM-20190539

PATIENT
  Age: 60 Year
  Sex: Male

DRUGS (14)
  1. NIVOLUMAB [Suspect]
     Active Substance: NIVOLUMAB
     Indication: MALIGNANT MELANOMA
     Dosage: DAILY DOSE: 120 MG MILLGRAM(S) EVERY 2 WEEKS
     Route: 042
  2. LISINOPRIL. [Concomitant]
     Active Substance: LISINOPRIL
  3. LEVOTHYROXINE. [Concomitant]
     Active Substance: LEVOTHYROXINE
  4. PAPAVERINE PHENTOLAMINE ALPROSTADIL [Concomitant]
  5. SILDENAFIL. [Concomitant]
     Active Substance: SILDENAFIL
  6. OXYCODONE [Concomitant]
     Active Substance: OXYCODONE
  7. OMEPRAZOLE. [Interacting]
     Active Substance: OMEPRAZOLE
  8. HYDROCHLOROTHIAZIDE. [Concomitant]
     Active Substance: HYDROCHLOROTHIAZIDE
  9. SIMVASTATIN. [Concomitant]
     Active Substance: SIMVASTATIN
  10. IPILIMUMAB [Suspect]
     Active Substance: IPILIMUMAB
     Indication: MALIGNANT MELANOMA
  11. ACETAMINOPHEN. [Concomitant]
     Active Substance: ACETAMINOPHEN
  12. DOCUSATE SODIUM. [Concomitant]
     Active Substance: DOCUSATE SODIUM
  13. LORAZEPAM. [Concomitant]
     Active Substance: LORAZEPAM
  14. NIVOLUMAB [Interacting]
     Active Substance: NIVOLUMAB
     Indication: MALIGNANT MELANOMA

REACTIONS (2)
  - Drug interaction [Recovered/Resolved]
  - Tubulointerstitial nephritis [Recovered/Resolved]
